APPROVED DRUG PRODUCT: TILADE
Active Ingredient: NEDOCROMIL SODIUM
Strength: 1.75MG/INH
Dosage Form/Route: AEROSOL, METERED;INHALATION
Application: N019660 | Product #001
Applicant: KING PHARMACEUTICALS LLC
Approved: Dec 30, 1992 | RLD: No | RS: No | Type: DISCN